FAERS Safety Report 4923660-5 (Version None)
Quarter: 2006Q1

REPORT INFORMATION
  Report Type: 
  Country: None (occurrence: None)
  Receive Date: 20060227
  Receipt Date: 20050718
  Transmission Date: 20060701
  Serious: Yes (Hospitalization)
  Sender: FDA-Public Use
  Company Number: US-MERCK-0507USA02879

PATIENT
  Age: 44 Year
  Sex: Male
  Weight: 114 kg

DRUGS (2)
  1. VIOXX [Suspect]
     Indication: JOINT SURGERY
     Route: 048
     Dates: start: 20000101, end: 20010301
  2. VIOXX [Suspect]
     Indication: ARTHRITIS
     Route: 048
     Dates: start: 20000101, end: 20010301

REACTIONS (4)
  - ARTERIOSCLEROSIS [None]
  - CARDIAC DISORDER [None]
  - HYPERTENSION [None]
  - OVERDOSE [None]
